FAERS Safety Report 4809918-9 (Version None)
Quarter: 2005Q4

REPORT INFORMATION
  Report Type: 
  Country: None (occurrence: None)
  Receive Date: 20051024
  Receipt Date: 20051018
  Transmission Date: 20060501
  Serious: Yes (Hospitalization, Other)
  Sender: FDA-Public Use
  Company Number: USA-2005-0021256

PATIENT
  Sex: Male
  Weight: 83.9 kg

DRUGS (2)
  1. OXYCONTIN [Suspect]
     Indication: PAIN
     Dosage: SEE IMAGE
     Route: 048
  2. KADIAN ^KNOLL^ [Concomitant]

REACTIONS (2)
  - FALL [None]
  - FEMUR FRACTURE [None]
